FAERS Safety Report 9208790 (Version 1)
Quarter: 2013Q1

REPORT INFORMATION
  Report Type: Spontaneous
  Country: US (occurrence: None)
  Receive Date: 20120817
  Receipt Date: 20120817
  Transmission Date: 20140127
  Serious: No
  Sender: FDA-Public Use
  Company Number: ADR-2012-00525

PATIENT
  Sex: Female

DRUGS (2)
  1. BACLOFEN INTRATHECAL (BACLOFEN INJECTION) [Suspect]
     Indication: PAIN
  2. BACLOFEN INTRATHECAL (BACLOFEN INJECTION) [Suspect]
     Indication: POST LAMINECTOMY SYNDROME

REACTIONS (1)
  - Gait disturbance [None]
